FAERS Safety Report 11198063 (Version 1)
Quarter: 2015Q2

REPORT INFORMATION
  Report Type: Spontaneous
  Country: GB (occurrence: GB)
  Receive Date: 20150617
  Receipt Date: 20150617
  Transmission Date: 20150821
  Serious: Yes (Other)
  Sender: FDA-Public Use
  Company Number: PHHY2015GB070063

PATIENT
  Age: 75 Year
  Sex: Female

DRUGS (1)
  1. ASPIRIN. [Suspect]
     Active Substance: ASPIRIN
     Indication: PRODUCT USED FOR UNKNOWN INDICATION
     Route: 065

REACTIONS (4)
  - Synovial cyst [Recovering/Resolving]
  - Muscle atrophy [Recovering/Resolving]
  - Hyperreflexia [Recovering/Resolving]
  - Haemorrhage [Recovering/Resolving]
